FAERS Safety Report 6566423-X (Version None)
Quarter: 2010Q1

REPORT INFORMATION
  Report Type: 
  Country: None (occurrence: None)
  Receive Date: 20100202
  Receipt Date: 20100120
  Transmission Date: 20100710
  Serious: Yes (Other)
  Sender: FDA-Public Use
  Company Number: PHEH2009US14982

PATIENT
  Sex: Female

DRUGS (1)
  1. RECLAST [Suspect]
     Indication: OSTEOPOROSIS
     Dosage: 1 DOSE
     Route: 042
     Dates: start: 20091106

REACTIONS (10)
  - CHILLS [None]
  - FALL [None]
  - HEAD INJURY [None]
  - HEADACHE [None]
  - HYPOTENSION [None]
  - INFLUENZA LIKE ILLNESS [None]
  - LOSS OF CONSCIOUSNESS [None]
  - MALAISE [None]
  - NAUSEA [None]
  - SYNCOPE [None]
